FAERS Safety Report 5099632-X (Version None)
Quarter: 2006Q3

REPORT INFORMATION
  Report Type: 
  Country: None (occurrence: None)
  Receive Date: 20060906
  Receipt Date: 20060823
  Transmission Date: 20061208
  Serious: Yes (Other)
  Sender: FDA-Public Use
  Company Number: 2006099484

PATIENT
  Age: 54 Year
  Sex: Female

DRUGS (2)
  1. ZITHROMAX [Suspect]
     Indication: DRUG USE FOR UNKNOWN INDICATION
     Dosage: 500 MG, ORAL
     Route: 048
     Dates: start: 20060731, end: 20060801
  2. BUFFERIN [Concomitant]

REACTIONS (3)
  - HALLUCINATION [None]
  - PHARYNGEAL ERYTHEMA [None]
  - SLEEP PARALYSIS [None]
